FAERS Safety Report 13959320 (Version 4)
Quarter: 2019Q1

REPORT INFORMATION
  Report Type: Spontaneous
  Country: GB (occurrence: GB)
  Receive Date: 20170912
  Receipt Date: 20190314
  Transmission Date: 20190417
  Serious: Yes (Death, Other)
  Sender: FDA-Public Use
  Company Number: PHFR2017GB007471

PATIENT
  Age: 44 Year
  Sex: Female

DRUGS (6)
  1. PREGABALIN. [Suspect]
     Active Substance: PREGABALIN
     Indication: PRODUCT USED FOR UNKNOWN INDICATION
     Dosage: 3 DF, UNK (TOTAL)
     Route: 065
  2. COCODAMOL [Suspect]
     Active Substance: ACETAMINOPHEN\CODEINE PHOSPHATE
     Indication: PAIN
     Dosage: 28 DF, QD[[112 TABLET, FOR TWO WEEKS]]
     Route: 048
  3. ZOPICLONE [Suspect]
     Active Substance: ZOPICLONE
     Indication: SLEEP DISORDER
     Dosage: 14 DF, Q2W
     Route: 048
  4. PARACETAMOL CODEINE [Suspect]
     Active Substance: ACETAMINOPHEN\CODEINE PHOSPHATE
     Indication: PAIN
     Dosage: 28 DF, QD (112 TABLETS PER TWO WEEKS)
     Route: 048
  5. PARACETAMOL [Suspect]
     Active Substance: ACETAMINOPHEN
     Indication: PRODUCT USED FOR UNKNOWN INDICATION
     Dosage: UNKNOWN
     Route: 065
  6. MORPHINE SULFATE. [Suspect]
     Active Substance: MORPHINE SULFATE
     Indication: PRODUCT USED FOR UNKNOWN INDICATION
     Dosage: 6 OR 7 TABLETS
     Route: 065
     Dates: start: 20161014, end: 20161014

REACTIONS (10)
  - Accidental overdose [Fatal]
  - Eye pain [Fatal]
  - Intentional product misuse [Fatal]
  - Vision blurred [Fatal]
  - Prescription drug used without a prescription [Fatal]
  - Gait disturbance [Fatal]
  - Drug abuse [None]
  - Dysarthria [Fatal]
  - Toxicity to various agents [Fatal]
  - Drug diversion [None]

NARRATIVE: CASE EVENT DATE: 201610
